FAERS Safety Report 15624851 (Version 1)
Quarter: 2018Q4

REPORT INFORMATION
  Report Type: Spontaneous
  Country: AU (occurrence: AU)
  Receive Date: 20181116
  Receipt Date: 20181116
  Transmission Date: 20190205
  Serious: Yes (Other)
  Sender: FDA-Public Use
  Company Number: PHHY2018AU152010

PATIENT
  Age: 82 Year
  Sex: Male

DRUGS (2)
  1. METOPROLOL. [Suspect]
     Active Substance: METOPROLOL
     Dosage: 2 DF (25 MG)
     Route: 048
  2. METOPROLOL. [Suspect]
     Active Substance: METOPROLOL
     Indication: ATRIAL FIBRILLATION
     Dosage: 7 MG, OVER THE COURSE OF TWO HOURS
     Route: 042

REACTIONS (2)
  - Product use in unapproved indication [Unknown]
  - Hepatotoxicity [Recovering/Resolving]
